FAERS Safety Report 4806501-6 (Version None)
Quarter: 2005Q4

REPORT INFORMATION
  Report Type: 
  Country: None (occurrence: None)
  Receive Date: 20051021
  Receipt Date: 20050930
  Transmission Date: 20060501
  Serious: Yes (Hospitalization)
  Sender: FDA-Public Use
  Company Number: US-BRISTOL-MYERS SQUIBB COMPANY-13128392

PATIENT
  Age: 47 Year
  Sex: Male

DRUGS (8)
  1. CISPLATIN [Suspect]
     Indication: NON-SMALL CELL LUNG CANCER
     Route: 041
     Dates: start: 20050915, end: 20050915
  2. TS-1 [Suspect]
     Indication: NON-SMALL CELL LUNG CANCER
     Route: 048
     Dates: start: 20050915, end: 20050915
  3. LORTAB [Suspect]
     Indication: CANCER PAIN
     Route: 048
     Dates: start: 20050915, end: 20050918
  4. DURAGESIC-100 [Suspect]
     Indication: CANCER PAIN
     Route: 062
     Dates: start: 20050910, end: 20050910
  5. PRAVACHOL [Concomitant]
     Indication: HYPERLIPIDAEMIA
     Route: 048
     Dates: start: 20020901
  6. ASPIRIN [Concomitant]
     Indication: THROMBOSIS PROPHYLAXIS
     Route: 048
     Dates: start: 20000501
  7. MULTI-VITAMIN [Concomitant]
     Indication: VITAMIN SUPPLEMENTATION
     Route: 048
     Dates: start: 20000501
  8. FISH OIL [Concomitant]
     Indication: HYPERLIPIDAEMIA
     Route: 048
     Dates: start: 20030901

REACTIONS (5)
  - BLOOD UREA INCREASED [None]
  - DEHYDRATION [None]
  - ORAL INTAKE REDUCED [None]
  - PHLEBOSCLEROSIS [None]
  - SOMNOLENCE [None]
